FAERS Safety Report 21402907 (Version 3)
Quarter: 2023Q1

REPORT INFORMATION
  Report Type: Spontaneous
  Country: CA (occurrence: CA)
  Receive Date: 20221003
  Receipt Date: 20230324
  Transmission Date: 20230417
  Serious: Yes (Death, Hospitalization, Other)
  Sender: FDA-Public Use
  Company Number: None

PATIENT
  Age: 59 Year
  Sex: Female

DRUGS (215)
  1. DICLOFENAC POTASSIUM [Suspect]
     Active Substance: DICLOFENAC POTASSIUM
     Indication: Product used for unknown indication
     Dosage: UNK
     Route: 065
  2. DICLOFENAC POTASSIUM [Suspect]
     Active Substance: DICLOFENAC POTASSIUM
     Dosage: 50 MG
     Route: 065
  3. ACETAMINOPHEN [Suspect]
     Active Substance: ACETAMINOPHEN
     Indication: Product used for unknown indication
     Dosage: UNK
     Route: 065
  4. ACETAMINOPHEN\CYANOCOBALAMIN\THIAMINE\TRAMADOL HYDROCHLORIDE [Suspect]
     Active Substance: ACETAMINOPHEN\CYANOCOBALAMIN\THIAMINE\TRAMADOL HYDROCHLORIDE
     Indication: Product used for unknown indication
     Dosage: UNK
     Route: 065
  5. ACTEMRA [Suspect]
     Active Substance: TOCILIZUMAB
     Indication: Rheumatoid arthritis
     Dosage: UNK
     Route: 042
  6. ACTEMRA [Suspect]
     Active Substance: TOCILIZUMAB
     Dosage: 728 MILLIGRAM
     Route: 058
  7. ACTEMRA [Suspect]
     Active Substance: TOCILIZUMAB
     Dosage: 752.8 MILLIGRAM
     Route: 058
  8. ACTEMRA [Suspect]
     Active Substance: TOCILIZUMAB
     Dosage: 3011.2 MILLIGRAM
     Route: 058
  9. ACTEMRA [Suspect]
     Active Substance: TOCILIZUMAB
     Dosage: 2312.0 MILLIGRAM
     Route: 058
  10. ADALIMUMAB [Suspect]
     Active Substance: ADALIMUMAB
     Indication: Rheumatoid arthritis
     Dosage: 40.0 MILLIGRAM
     Route: 058
  11. ALENDRONATE SODIUM [Suspect]
     Active Substance: ALENDRONATE SODIUM
     Indication: Rheumatoid arthritis
     Dosage: UNK
     Route: 065
  12. ALENDRONATE SODIUM [Suspect]
     Active Substance: ALENDRONATE SODIUM
     Dosage: UNK
     Route: 048
  13. ALENDRONIC ACID [Suspect]
     Active Substance: ALENDRONIC ACID
     Indication: Product used for unknown indication
     Dosage: UNK
     Route: 065
  14. ALENDRONIC ACID\CALCIUM CITRATE\CHOLECALCIFEROL [Suspect]
     Active Substance: ALENDRONIC ACID\CALCIUM CITRATE\CHOLECALCIFEROL
     Indication: Product used for unknown indication
     Dosage: UNK
     Route: 065
  15. AMMONIUM CHLORIDE\DIPHENHYDRAMINE HYDROCHLORIDE\MENTHOL\SODIUM CITRATE [Suspect]
     Active Substance: AMMONIUM CHLORIDE\DIPHENHYDRAMINE HYDROCHLORIDE\MENTHOL\SODIUM CITRATE
     Indication: Product used for unknown indication
     Dosage: UNK
     Route: 065
  16. AMMONIUM CHLORIDE\DIPHENHYDRAMINE HYDROCHLORIDE\MENTHOL\SODIUM CITRATE [Suspect]
     Active Substance: AMMONIUM CHLORIDE\DIPHENHYDRAMINE HYDROCHLORIDE\MENTHOL\SODIUM CITRATE
     Indication: Product used for unknown indication
     Dosage: UNK
     Route: 065
  17. AMINOSALICYLATE CALCIUM [Suspect]
     Active Substance: AMINOSALICYLATE CALCIUM
     Indication: Product used for unknown indication
     Dosage: UNK
     Route: 065
  18. PREDNISONE [Suspect]
     Active Substance: PREDNISONE
     Indication: Product used for unknown indication
     Dosage: 40.0 MILLIGRAM
     Route: 048
  19. ARAVA [Suspect]
     Active Substance: LEFLUNOMIDE
     Indication: Rheumatoid arthritis
     Dosage: 20 MG
     Route: 065
  20. ARAVA [Suspect]
     Active Substance: LEFLUNOMIDE
     Dosage: 20.0 MILLIGRAM
     Route: 048
  21. ARAVA [Suspect]
     Active Substance: LEFLUNOMIDE
     Dosage: UNK
     Route: 048
  22. ARAVA [Suspect]
     Active Substance: LEFLUNOMIDE
     Dosage: 10 MILLIGRAM, QD
     Route: 048
  23. ASACOL [Suspect]
     Active Substance: MESALAMINE
     Indication: Crohn^s disease
     Dosage: UNK
     Route: 065
  24. AZATHIOPRINE SODIUM [Suspect]
     Active Substance: AZATHIOPRINE SODIUM
     Indication: Rheumatoid arthritis
     Dosage: UNK
     Route: 065
  25. DIETARY SUPPLEMENT [Suspect]
     Active Substance: DIETARY SUPPLEMENT
     Indication: Rheumatoid arthritis
     Dosage: UNK
     Route: 065
  26. BUPIVACAINE HYDROCHLORIDE [Suspect]
     Active Substance: BUPIVACAINE HYDROCHLORIDE
     Indication: Rheumatoid arthritis
     Dosage: UNK
     Route: 065
  27. CALCIUM [Suspect]
     Active Substance: CALCIUM
     Indication: Product used for unknown indication
     Dosage: UNK
     Route: 065
  28. CALCIUM CARBONATE [Suspect]
     Active Substance: CALCIUM CARBONATE
     Indication: Product used for unknown indication
     Dosage: UNK
     Route: 065
  29. CALCIUM CARBONATE\CALCIUM LACTATE GLUCONATE [Suspect]
     Active Substance: CALCIUM CARBONATE\CALCIUM LACTATE GLUCONATE
     Indication: Product used for unknown indication
     Dosage: UNK
     Route: 065
  30. CALCIUM CITRATE [Suspect]
     Active Substance: CALCIUM CITRATE
     Indication: Product used for unknown indication
     Dosage: UNK
     Route: 065
  31. CALCIUM GLUBIONATE [Suspect]
     Active Substance: CALCIUM GLUBIONATE
     Indication: Product used for unknown indication
     Dosage: UNK
     Route: 065
  32. MINERALS\VITAMINS [Suspect]
     Active Substance: MINERALS\VITAMINS
     Indication: Rheumatoid arthritis
     Dosage: 110 MG
     Route: 065
  33. MINERALS\VITAMINS [Suspect]
     Active Substance: MINERALS\VITAMINS
     Dosage: UNK
     Route: 065
  34. CERTOLIZUMAB PEGOL [Suspect]
     Active Substance: CERTOLIZUMAB PEGOL
     Indication: Product used for unknown indication
     Dosage: UNK
     Route: 065
  35. CETIRIZINE HYDROCHLORIDE [Suspect]
     Active Substance: CETIRIZINE HYDROCHLORIDE
     Indication: Rheumatoid arthritis
     Dosage: 10.0 UNK
     Route: 065
  36. CETIRIZINE HYDROCHLORIDE [Suspect]
     Active Substance: CETIRIZINE HYDROCHLORIDE
     Indication: Off label use
     Dosage: UNK
     Route: 065
  37. CETIRIZINE HYDROCHLORIDE [Suspect]
     Active Substance: CETIRIZINE HYDROCHLORIDE
     Dosage: 25 MG
     Route: 065
  38. CETIRIZINE HYDROCHLORIDE [Suspect]
     Active Substance: CETIRIZINE HYDROCHLORIDE
     Indication: Off label use
     Dosage: UNK
     Route: 065
  39. CETIRIZINE HYDROCHLORIDE [Suspect]
     Active Substance: CETIRIZINE HYDROCHLORIDE
     Indication: Rheumatoid arthritis
     Dosage: 10 MG
     Route: 065
  40. CHLORHEXIDINE\SODIUM FLUORIDE\TRICLOSAN\ZINC CHLORIDE [Suspect]
     Active Substance: CHLORHEXIDINE\SODIUM FLUORIDE\TRICLOSAN\ZINC CHLORIDE
     Indication: Product used for unknown indication
     Dosage: UNK
     Route: 065
  41. CIMZIA [Suspect]
     Active Substance: CERTOLIZUMAB PEGOL
     Indication: Rheumatoid arthritis
     Dosage: 400.0 MILLIGRAM
     Route: 058
  42. CIMZIA [Suspect]
     Active Substance: CERTOLIZUMAB PEGOL
     Indication: Psoriasis
     Dosage: UNK
     Route: 058
  43. CORTISONE (HYDROCORTISONE) [Suspect]
     Active Substance: HYDROCORTISONE
     Indication: Rheumatoid arthritis
     Dosage: UNK
     Route: 048
  44. CORTISONE ACETATE [Suspect]
     Active Substance: CORTISONE ACETATE
     Indication: Rheumatoid arthritis
     Dosage: 25.0 MILLIGRAM
     Route: 048
  45. CORTISONE ACETATE\DIPHENHYDRMINE HYDROCHLORIDE\SULFISOMIDINE [Suspect]
     Active Substance: CORTISONE ACETATE\DIPHENHYDRAMINE HYDROCHLORIDE\SULFISOMIDINE
     Indication: Rheumatoid arthritis
     Dosage: 25 MG
     Route: 065
  46. CORTISONE ACETATE\DIPHENHYDRMINE HYDROCHLORIDE\SULFISOMIDINE [Suspect]
     Active Substance: CORTISONE ACETATE\DIPHENHYDRAMINE HYDROCHLORIDE\SULFISOMIDINE
     Dosage: UNK
     Route: 065
  47. COSENTYX [Suspect]
     Active Substance: SECUKINUMAB
     Indication: Rheumatoid arthritis
     Dosage: UNK
     Route: 065
  48. DESOXIMETASONE [Suspect]
     Active Substance: DESOXIMETASONE
     Indication: Rheumatoid arthritis
     Dosage: UNK
     Route: 061
  49. DESOXIMETASONE [Suspect]
     Active Substance: DESOXIMETASONE
     Dosage: UNK
     Route: 048
  50. DESOXIMETASONE [Suspect]
     Active Substance: DESOXIMETASONE
     Dosage: UNK
     Route: 067
  51. DESOXIMETASONE [Suspect]
     Active Substance: DESOXIMETASONE
     Dosage: UNK
     Route: 003
  52. DESOXIMETASONE\FRAMYCETIN SULFATE\GRAMICIDIN [Suspect]
     Active Substance: DESOXIMETASONE\FRAMYCETIN SULFATE\GRAMICIDIN
     Indication: Rheumatoid arthritis
     Dosage: UNK
     Route: 061
  53. DICLOFENAC POTASSIUM [Suspect]
     Active Substance: DICLOFENAC POTASSIUM
     Indication: Product used for unknown indication
     Dosage: UNK
     Route: 065
  54. DICLOFENAC SODIUM [Suspect]
     Active Substance: DICLOFENAC SODIUM
     Indication: Product used for unknown indication
     Dosage: 50 GRAM
     Route: 065
  55. DIPHENHYDRAMINE [Suspect]
     Active Substance: DIPHENHYDRAMINE
     Indication: Product used for unknown indication
     Dosage: UNK
     Route: 065
  56. DIPHENHYDRAMINE HYDROCHLORIDE [Suspect]
     Active Substance: DIPHENHYDRAMINE HYDROCHLORIDE
     Indication: Product used for unknown indication
     Dosage: UNK
     Route: 065
  57. DIPHENHYDRAMINE [Suspect]
     Active Substance: DIPHENHYDRAMINE
     Indication: Product used for unknown indication
     Dosage: UNK
     Route: 065
  58. ENBREL [Suspect]
     Active Substance: ETANERCEPT
     Indication: Rheumatoid arthritis
     Dosage: UNK
     Route: 065
  59. ENBREL [Suspect]
     Active Substance: ETANERCEPT
     Dosage: UNK
     Route: 058
  60. ENBREL [Suspect]
     Active Substance: ETANERCEPT
     Dosage: 50 MILLIGRAM, WEEKLY
     Route: 058
  61. ERELZI [Suspect]
     Active Substance: ETANERCEPT-SZZS
     Indication: Rheumatoid arthritis
     Dosage: UNK
     Route: 065
  62. ERELZI [Suspect]
     Active Substance: ETANERCEPT-SZZS
     Dosage: UNK
     Route: 058
  63. ERELZI [Suspect]
     Active Substance: ETANERCEPT-SZZS
     Dosage: 50 MILLIGRAM
     Route: 065
  64. ERELZI [Suspect]
     Active Substance: ETANERCEPT-SZZS
     Dosage: 50 MILLIGRAM, QD
     Route: 065
  65. FLUMETHASONE\SALICYLIC ACID [Suspect]
     Active Substance: FLUMETHASONE\SALICYLIC ACID
     Indication: Product used for unknown indication
     Dosage: UNK
     Route: 003
  66. FLUMETHASONE\SALICYLIC ACID [Suspect]
     Active Substance: FLUMETHASONE\SALICYLIC ACID
     Dosage: UNK
     Route: 065
  67. FLUMETHASONE\SALICYLIC ACID [Suspect]
     Active Substance: FLUMETHASONE\SALICYLIC ACID
     Dosage: UNK
     Route: 058
  68. FOLIC ACID [Suspect]
     Active Substance: FOLIC ACID
     Indication: Rheumatoid arthritis
     Dosage: UNK
     Route: 065
  69. FOLIC ACID [Suspect]
     Active Substance: FOLIC ACID
     Dosage: 25 MG
     Route: 065
  70. FOLIC ACID [Suspect]
     Active Substance: FOLIC ACID
     Dosage: 0.5 MG
     Route: 065
  71. FOLIC ACID [Suspect]
     Active Substance: FOLIC ACID
     Dosage: 1 MG
     Route: 065
  72. FOLIC ACID [Suspect]
     Active Substance: FOLIC ACID
     Dosage: 5 MG
     Route: 065
  73. FOLIC ACID [Suspect]
     Active Substance: FOLIC ACID
     Dosage: 15 MG
     Route: 065
  74. FOLIC ACID [Suspect]
     Active Substance: FOLIC ACID
     Dosage: 1 GRAM
     Route: 065
  75. FOLIC ACID [Suspect]
     Active Substance: FOLIC ACID
     Dosage: 50 MG
     Route: 065
  76. FOLIC ACID [Suspect]
     Active Substance: FOLIC ACID
     Dosage: 500 MG
     Route: 065
  77. FOSAMAX [Suspect]
     Active Substance: ALENDRONATE SODIUM
     Indication: Rheumatoid arthritis
     Dosage: UNK
     Route: 065
  78. FOSAMAX [Suspect]
     Active Substance: ALENDRONATE SODIUM
     Dosage: UNK
     Route: 048
  79. FOSAMAX [Suspect]
     Active Substance: ALENDRONATE SODIUM
     Dosage: UNK
     Route: 016
  80. ENOXOLONE [Suspect]
     Active Substance: ENOXOLONE
     Indication: Product used for unknown indication
     Dosage: UNK
     Route: 065
  81. GOLIMUMAB [Suspect]
     Active Substance: GOLIMUMAB
     Indication: Product used for unknown indication
     Dosage: UNK
     Route: 065
  82. HUMIRA [Suspect]
     Active Substance: ADALIMUMAB
     Indication: Rheumatoid arthritis
     Dosage: 40.0 MILLIGRAM
     Route: 058
  83. HUMIRA [Suspect]
     Active Substance: ADALIMUMAB
     Dosage: 4 MG
     Route: 058
  84. HYDROCORTISONE [Suspect]
     Active Substance: HYDROCORTISONE
     Indication: Rheumatoid arthritis
     Dosage: 25.0 MILLIGRAM
     Route: 048
  85. HYDROCORTISONE [Suspect]
     Active Substance: HYDROCORTISONE
     Dosage: 25 MG
     Route: 061
  86. HYDROCORTISONE\NEOMYCIN\NITROFURAZONE\RETINOL\THYMOL\TYROTHRICIN [Suspect]
     Active Substance: HYDROCORTISONE\NEOMYCIN\NITROFURAZONE\RETINOL\THYMOL\TYROTHRICIN
     Indication: Rheumatoid arthritis
     Dosage: UNK
     Route: 048
  87. HYDROCORTISONE\NEOMYCIN\NITROFURAZONE\RETINOL\THYMOL\TYROTHRICIN [Suspect]
     Active Substance: HYDROCORTISONE\NEOMYCIN\NITROFURAZONE\RETINOL\THYMOL\TYROTHRICIN
     Dosage: 25 MG
     Route: 048
  88. HYDROXYCHLOROQUINE [Suspect]
     Active Substance: HYDROXYCHLOROQUINE
     Indication: Rheumatoid arthritis
     Dosage: UNK
     Route: 065
  89. HYDROXYCHLOROQUINE [Suspect]
     Active Substance: HYDROXYCHLOROQUINE
     Dosage: 400 MG
     Route: 065
  90. HYDROXYCHLOROQUINE [Suspect]
     Active Substance: HYDROXYCHLOROQUINE
     Dosage: UNK
     Route: 048
  91. HYDROXYCHLOROQUINE SULFATE [Suspect]
     Active Substance: HYDROXYCHLOROQUINE SULFATE
     Indication: Rheumatoid arthritis
     Dosage: 400.0 MILLIGRAM
     Route: 048
  92. HYDROXYCHLOROQUINE SULFATE [Suspect]
     Active Substance: HYDROXYCHLOROQUINE SULFATE
     Dosage: 400.0 MILLIGRAM
     Route: 065
  93. HYDROXYCHLOROQUINE SULFATE [Suspect]
     Active Substance: HYDROXYCHLOROQUINE SULFATE
     Dosage: 400 MILLIGRAM, QD
     Route: 065
  94. HYDROXYCHLOROQUINE SULFATE [Suspect]
     Active Substance: HYDROXYCHLOROQUINE SULFATE
     Dosage: 40.0 MILLIGRAM
     Route: 065
  95. HYDROXYCHLOROQUINE SULFATE [Suspect]
     Active Substance: HYDROXYCHLOROQUINE SULFATE
     Dosage: 400 MILLIGRAM, QD
     Route: 065
  96. INFLIXIMAB [Suspect]
     Active Substance: INFLIXIMAB
     Indication: Product used for unknown indication
     Dosage: UNK
     Route: 042
  97. KEVZARA [Suspect]
     Active Substance: SARILUMAB
     Indication: Rheumatoid arthritis
     Dosage: UNK
     Route: 065
  98. LEFLUNOMIDE [Suspect]
     Active Substance: LEFLUNOMIDE
     Indication: Rheumatoid arthritis
     Dosage: UNK
     Route: 065
  99. LEFLUNOMIDE [Suspect]
     Active Substance: LEFLUNOMIDE
     Dosage: 20 MG
     Route: 048
  100. LEFLUNOMIDE [Suspect]
     Active Substance: LEFLUNOMIDE
     Dosage: UNK
     Route: 048
  101. LIDOCAINE [Suspect]
     Active Substance: LIDOCAINE
     Indication: Product used for unknown indication
     Dosage: UNK
     Route: 065
  102. MENTHOL [Suspect]
     Active Substance: MENTHOL
     Indication: Product used for unknown indication
     Dosage: UNK
     Route: 065
  103. METHOTREXATE [Suspect]
     Active Substance: METHOTREXATE
     Indication: Rheumatoid arthritis
     Dosage: UNK
     Route: 013
  104. METHOTREXATE [Suspect]
     Active Substance: METHOTREXATE
     Dosage: 25 MG
     Route: 065
  105. METHOTREXATE [Suspect]
     Active Substance: METHOTREXATE
     Dosage: 20 MG
     Route: 065
  106. METHOTREXATE [Suspect]
     Active Substance: METHOTREXATE
     Dosage: 25 MG
     Route: 048
  107. METHOTREXATE [Suspect]
     Active Substance: METHOTREXATE
     Dosage: 25 MG
     Route: 058
  108. METHOTREXATE [Suspect]
     Active Substance: METHOTREXATE
     Dosage: UNK
     Route: 058
  109. METHOTREXATE [Suspect]
     Active Substance: METHOTREXATE
     Dosage: 40 MG
     Route: 048
  110. METHOTREXATE [Suspect]
     Active Substance: METHOTREXATE
     Dosage: 20 MG
     Route: 048
  111. METHOTREXATE [Suspect]
     Active Substance: METHOTREXATE
     Dosage: UNK
     Route: 048
  112. METHOTREXATE [Suspect]
     Active Substance: METHOTREXATE
     Dosage: UNK
     Route: 016
  113. METHOTREXATE [Suspect]
     Active Substance: METHOTREXATE
     Dosage: 225 MG
     Route: 065
  114. METHOTREXATE [Suspect]
     Active Substance: METHOTREXATE
     Dosage: UNK
     Route: 065
  115. METHOTREXATE [Suspect]
     Active Substance: METHOTREXATE
     Dosage: 20 MILLIGRAM, QD
     Route: 048
  116. METHOTREXATE [Suspect]
     Active Substance: METHOTREXATE
     Dosage: 25 MILLIGRAM, QD
     Route: 058
  117. METHOTREXATE [Suspect]
     Active Substance: METHOTREXATE
     Dosage: 20 MILLIGRAM, WEEKLY
     Route: 048
  118. METHYLPREDNISOLONE SODIUM SUCCINATE [Suspect]
     Active Substance: METHYLPREDNISOLONE SODIUM SUCCINATE
     Indication: Product used for unknown indication
     Dosage: UNK
     Route: 065
  119. MINOCYCLINE HYDROCHLORIDE [Suspect]
     Active Substance: MINOCYCLINE HYDROCHLORIDE
     Indication: Product used for unknown indication
     Dosage: UNK
     Route: 065
  120. MORPHINE SULFATE [Suspect]
     Active Substance: MORPHINE SULFATE
     Indication: Rheumatoid arthritis
     Dosage: UNK
     Route: 065
  121. NEOMYCIN SULFATE [Suspect]
     Active Substance: NEOMYCIN SULFATE
     Indication: Product used for unknown indication
     Dosage: UNK
     Route: 065
  122. ORENCIA [Suspect]
     Active Substance: ABATACEPT
     Indication: Rheumatoid arthritis
     Dosage: UNK
     Route: 058
  123. ORENCIA [Suspect]
     Active Substance: ABATACEPT
     Dosage: UNK
     Route: 042
  124. ORENCIA [Suspect]
     Active Substance: ABATACEPT
     Dosage: UNK
     Route: 065
  125. OTEZLA [Suspect]
     Active Substance: APREMILAST
     Indication: Product used for unknown indication
     Dosage: 3.0 MILLIGRAM
     Route: 048
  126. PANTOPRAZOLE [Suspect]
     Active Substance: PANTOPRAZOLE
     Indication: Dyspepsia
     Dosage: UNK
     Route: 065
  127. PANTOPRAZOLE SODIUM ANHYDROUS [Suspect]
     Active Substance: PANTOPRAZOLE SODIUM ANHYDROUS
     Indication: Dyspepsia
     Dosage: UNK
     Route: 065
  128. PHTHALYLSULFATHIAZOLE [Suspect]
     Active Substance: PHTHALYLSULFATHIAZOLE
     Indication: Rheumatoid arthritis
     Dosage: UNK
     Route: 065
  129. PHTHALYLSULFATHIAZOLE [Suspect]
     Active Substance: PHTHALYLSULFATHIAZOLE
     Dosage: 400 MG
     Route: 065
  130. PREDNISONE [Suspect]
     Active Substance: PREDNISONE
     Indication: Product used for unknown indication
     Dosage: UNK
     Route: 048
  131. PREDNISONE [Suspect]
     Active Substance: PREDNISONE
     Dosage: 40 MILLIGRAM
     Route: 048
  132. PREDNISONE [Suspect]
     Active Substance: PREDNISONE
     Dosage: UNK
     Route: 065
  133. PREDNISONE [Suspect]
     Active Substance: PREDNISONE
     Indication: Product used for unknown indication
     Dosage: 40 MG
     Route: 048
  134. RITUXIMAB [Suspect]
     Active Substance: RITUXIMAB
     Dosage: 25 MG
     Route: 048
  135. PREDNISONE [Suspect]
     Active Substance: PREDNISONE
     Dosage: 5 MG
     Route: 048
  136. RITUXIMAB [Suspect]
     Active Substance: RITUXIMAB
     Dosage: UNK
     Route: 048
  137. PSEUDOEPHEDRINE HYDROCHLORIDE [Suspect]
     Active Substance: PSEUDOEPHEDRINE HYDROCHLORIDE
     Indication: Rheumatoid arthritis
     Dosage: UNK
     Route: 048
  138. CETIRIZINE HYDROCHLORIDE\PSEUDOEPHEDRINE HYDROCHLORIDE [Suspect]
     Active Substance: CETIRIZINE HYDROCHLORIDE\PSEUDOEPHEDRINE HYDROCHLORIDE
     Indication: Rheumatoid arthritis
     Dosage: UNK
     Route: 067
  139. REMICADE [Suspect]
     Active Substance: INFLIXIMAB
     Indication: Rheumatoid arthritis
     Dosage: 500 MG
     Route: 065
  140. REMICADE [Suspect]
     Active Substance: INFLIXIMAB
     Indication: Colitis ulcerative
     Dosage: 300.0 MILLIGRAM
     Route: 042
  141. REMICADE [Suspect]
     Active Substance: INFLIXIMAB
     Dosage: 5 MG/KG
     Route: 042
  142. REMICADE [Suspect]
     Active Substance: INFLIXIMAB
     Dosage: 400 MG
     Route: 042
  143. REMICADE [Suspect]
     Active Substance: INFLIXIMAB
     Dosage: UNK
     Route: 042
  144. REMICADE [Suspect]
     Active Substance: INFLIXIMAB
     Dosage: UNK MG
     Route: 058
  145. REMICADE [Suspect]
     Active Substance: INFLIXIMAB
     Indication: Rheumatoid arthritis
     Dosage: 500 MG
     Route: 042
  146. REMICADE [Suspect]
     Active Substance: INFLIXIMAB
     Dosage: 5 MG/KG
     Route: 042
  147. REMICADE [Suspect]
     Active Substance: INFLIXIMAB
     Dosage: 400 MG
     Route: 042
  148. REMICADE [Suspect]
     Active Substance: INFLIXIMAB
     Dosage: UNK
     Route: 042
  149. RITUXIMAB [Suspect]
     Active Substance: RITUXIMAB
     Indication: Rheumatoid arthritis
     Dosage: UNK
     Route: 058
  150. RITUXIMAB [Suspect]
     Active Substance: RITUXIMAB
     Dosage: UNK
     Route: 042
  151. RITUXIMAB [Suspect]
     Active Substance: RITUXIMAB
     Dosage: UNK
     Route: 065
  152. SECUKINUMAB [Suspect]
     Active Substance: SECUKINUMAB
     Indication: Rheumatoid arthritis
     Dosage: UNK
     Route: 065
  153. SIMPONI [Suspect]
     Active Substance: GOLIMUMAB
     Indication: Rheumatoid arthritis
     Dosage: 50.0 MILLIGRAM
     Route: 065
  154. SIMPONI [Suspect]
     Active Substance: GOLIMUMAB
     Dosage: UNK
     Route: 058
  155. SOLU-MEDROL [Suspect]
     Active Substance: METHYLPREDNISOLONE SODIUM SUCCINATE
     Indication: Product used for unknown indication
     Dosage: UNK
     Route: 048
  156. STELARA [Suspect]
     Active Substance: USTEKINUMAB
     Indication: Rheumatoid arthritis
     Dosage: UNK
     Route: 065
  157. STELARA [Suspect]
     Active Substance: USTEKINUMAB
     Dosage: 40 MILLIGRAM
     Route: 065
  158. SULFASALAZINE [Suspect]
     Active Substance: SULFASALAZINE
     Indication: Rheumatoid arthritis
     Dosage: 1000.0 MILLIGRAM
     Route: 058
  159. SULFASALAZINE [Suspect]
     Active Substance: SULFASALAZINE
     Dosage: 500.0 MILLIGRAM
     Route: 048
  160. SULFASALAZINE [Suspect]
     Active Substance: SULFASALAZINE
     Dosage: 500.0 MILLIGRAM
     Route: 048
  161. SULFASALAZINE [Suspect]
     Active Substance: SULFASALAZINE
     Dosage: 10 MG
     Route: 058
  162. SULFASALAZINE [Suspect]
     Active Substance: SULFASALAZINE
     Dosage: 500 MG
     Route: 058
  163. SULFASALAZINE [Suspect]
     Active Substance: SULFASALAZINE
     Dosage: 2 MILLIGRAM
     Route: 058
  164. SULFASALAZINE [Suspect]
     Active Substance: SULFASALAZINE
     Dosage: 1 GRAM
     Route: 058
  165. SULFASALAZINE [Suspect]
     Active Substance: SULFASALAZINE
     Dosage: 1 GRAM, BID
     Route: 058
  166. SULFASALAZINE [Suspect]
     Active Substance: SULFASALAZINE
     Dosage: 2 MG, BID
     Route: 058
  167. SULFASALAZINE [Suspect]
     Active Substance: SULFASALAZINE
     Dosage: 1 GRAM, QD
     Route: 058
  168. TIOCONAZOLE [Suspect]
     Active Substance: TIOCONAZOLE
     Indication: Product used for unknown indication
     Dosage: UNK
     Route: 065
  169. TOCILIZUMAB [Suspect]
     Active Substance: TOCILIZUMAB
     Indication: Rheumatoid arthritis
     Dosage: UNK
     Route: 058
  170. TOCILIZUMAB [Suspect]
     Active Substance: TOCILIZUMAB
     Dosage: 728 MG
     Route: 058
  171. TOCILIZUMAB [Suspect]
     Active Substance: TOCILIZUMAB
     Dosage: 2912 MG
     Route: 058
  172. TOCILIZUMAB [Suspect]
     Active Substance: TOCILIZUMAB
     Dosage: UNK
     Route: 042
  173. TOCILIZUMAB [Suspect]
     Active Substance: TOCILIZUMAB
     Dosage: 8 MILLIGRAM
     Route: 016
  174. UREA [Suspect]
     Active Substance: UREA
     Indication: Product used for unknown indication
     Dosage: UNK
     Route: 065
  175. USTEKINUMAB [Suspect]
     Active Substance: USTEKINUMAB
     Indication: Rheumatoid arthritis
     Dosage: UNK
     Route: 065
  176. USTEKINUMAB [Suspect]
     Active Substance: USTEKINUMAB
     Dosage: 40 MG
     Route: 065
  177. USTEKINUMAB [Suspect]
     Active Substance: USTEKINUMAB
     Dosage: UNK
     Route: 058
  178. USTEKINUMAB [Suspect]
     Active Substance: USTEKINUMAB
     Dosage: 40 MG
     Route: 058
  179. PREDNISONE [Suspect]
     Active Substance: PREDNISONE
     Indication: Rheumatoid arthritis
     Dosage: UNK
     Route: 048
  180. XELJANZ [Suspect]
     Active Substance: TOFACITINIB CITRATE
     Indication: Rheumatoid arthritis
     Dosage: UNK
     Route: 048
  181. XELJANZ [Suspect]
     Active Substance: TOFACITINIB CITRATE
     Dosage: 5.0 MILLIGRAM
     Route: 065
  182. XELJANZ [Suspect]
     Active Substance: TOFACITINIB CITRATE
     Dosage: 5.0 MILLIGRAM,1 EVERY 2 WEEKS
     Route: 065
  183. ZINC [Suspect]
     Active Substance: ZINC
     Indication: Rheumatoid arthritis
     Dosage: UNK
     Route: 065
  184. ACETAMINOPHEN\BUTALBITAL\CAFFEINE\CODEINE PHOSPHATE [Concomitant]
     Active Substance: ACETAMINOPHEN\BUTALBITAL\CAFFEINE\CODEINE PHOSPHATE
     Indication: Product used for unknown indication
     Dosage: UNK
  185. BUTALBITAL [Concomitant]
     Active Substance: BUTALBITAL
     Indication: Product used for unknown indication
     Dosage: UNK
  186. ATIVAN [Concomitant]
     Active Substance: LORAZEPAM
     Indication: Product used for unknown indication
     Dosage: UNK
  187. CAFFEINE [Concomitant]
     Active Substance: CAFFEINE
     Indication: Product used for unknown indication
     Dosage: UNK
  188. CAFFEINE CITRATE [Concomitant]
     Active Substance: CAFFEINE CITRATE
     Indication: Product used for unknown indication
     Route: 065
  189. CHONDROITIN SULFATE;GLUCOSAMINE SULFATE;MANGANESE [Concomitant]
     Indication: Product used for unknown indication
     Dosage: UNK
  190. ASCORBIC ACID;CHONDROITIN SULFATE;GLUCOSAMINE SULFATE;MANGANESE [Concomitant]
     Indication: Product used for unknown indication
     Dosage: UNK
     Route: 065
  191. CODEINE [Concomitant]
     Active Substance: CODEINE
     Indication: Product used for unknown indication
     Dosage: UNK
  192. CYANOCOBALAMIN;LYSINE;NICOTINAMIDE;PYRIDOXINE;RIBOFLAVIN;THIAMINE [Concomitant]
     Indication: Product used for unknown indication
     Dosage: UNK
  193. DESOGESTREL\ETHINYL ESTRADIOL [Concomitant]
     Active Substance: DESOGESTREL\ETHINYL ESTRADIOL
     Indication: Product used for unknown indication
     Dosage: UNK
     Route: 065
  194. DOCONEXENT\ICOSAPENT [Concomitant]
     Active Substance: DOCONEXENT\ICOSAPENT
     Indication: Product used for unknown indication
     Dosage: UNK
  195. ERGOCALCIFEROL;LYSINE HYDROCHLORIDE;NICOTINAMIDE;PYRIDOXINE HYDROCHLOR [Concomitant]
     Indication: Product used for unknown indication
     Dosage: UNK
  196. IBUPROFEN [Concomitant]
     Active Substance: IBUPROFEN
     Indication: Product used for unknown indication
     Route: 065
  197. LISINOPRIL [Concomitant]
     Active Substance: LISINOPRIL
     Indication: Product used for unknown indication
     Route: 065
  198. LORAZEPAM;TEMAZEPAM [Concomitant]
     Indication: Product used for unknown indication
     Dosage: UNK
  199. PARACETAMOL, PSEUDOEPHEDRINE HYDROCHLORIDE AND DEXTROMETHORPHAN HYDROB [Concomitant]
     Indication: Product used for unknown indication
     Dosage: UNK
     Route: 065
  200. TOFACITINIB CITRATE [Concomitant]
     Active Substance: TOFACITINIB CITRATE
     Indication: Product used for unknown indication
     Dosage: 5.0 MILLIGRAM
     Route: 048
  201. VITAMIN D3 [Concomitant]
     Active Substance: CHOLECALCIFEROL
     Indication: Product used for unknown indication
     Route: 065
  202. SULFASALAZINE [Concomitant]
     Active Substance: SULFASALAZINE
     Indication: Product used for unknown indication
     Dosage: 1.0 DOSAGE FORM
     Route: 048
  203. ZESTRIL [Concomitant]
     Active Substance: LISINOPRIL
     Indication: Product used for unknown indication
     Dosage: UNK
  204. CLONIDINE HYDROCHLORIDE [Suspect]
     Active Substance: CLONIDINE HYDROCHLORIDE
  205. MORPHINE SULFATE [Suspect]
     Active Substance: MORPHINE SULFATE
  206. ENOXOLONE [Suspect]
     Active Substance: ENOXOLONE
  207. LIDOCAINE [Suspect]
     Active Substance: LIDOCAINE
  208. MENTHOL [Suspect]
     Active Substance: MENTHOL
  209. NEOMYCIN SULFATE [Suspect]
     Active Substance: NEOMYCIN SULFATE
  210. TIOCONAZOLE [Suspect]
     Active Substance: TIOCONAZOLE
  211. UREA [Suspect]
     Active Substance: UREA
  212. HYDROCORTISONE\NEOMYCIN\NITROFURAZONE\RETINOL\THYMOL\TYROTHRICIN [Suspect]
     Active Substance: HYDROCORTISONE\NEOMYCIN\NITROFURAZONE\RETINOL\THYMOL\TYROTHRICIN
  213. HYDROCORTISONE\NEOMYCIN\NITROFURAZONE\RETINOL\THYMOL\TYROTHRICIN [Suspect]
     Active Substance: HYDROCORTISONE\NEOMYCIN\NITROFURAZONE\RETINOL\THYMOL\TYROTHRICIN
  214. HYDROCORTISONE\NEOMYCIN\NITROFURAZONE\RETINOL\THYMOL\TYROTHRICIN [Suspect]
     Active Substance: HYDROCORTISONE\NEOMYCIN\NITROFURAZONE\RETINOL\THYMOL\TYROTHRICIN
  215. HYDROCORTISONE\NEOMYCIN\NITROFURAZONE\RETINOL\THYMOL\TYROTHRICIN [Suspect]
     Active Substance: HYDROCORTISONE\NEOMYCIN\NITROFURAZONE\RETINOL\THYMOL\TYROTHRICIN

REACTIONS (62)
  - Abdominal discomfort [Fatal]
  - Adverse drug reaction [Fatal]
  - Adverse event [Fatal]
  - Anti-cyclic citrullinated peptide antibody [Fatal]
  - Anti-cyclic citrullinated peptide antibody positive [Fatal]
  - Anti-cyclic citrullinated peptide antibody positive [Fatal]
  - Arthralgia [Fatal]
  - Arthropathy [Fatal]
  - Blood cholesterol increased [Fatal]
  - Condition aggravated [Fatal]
  - Contraindicated product administered [Fatal]
  - Decreased appetite [Fatal]
  - Discomfort [Fatal]
  - Drug intolerance [Fatal]
  - Exposure during pregnancy [Fatal]
  - Fibromyalgia [Fatal]
  - General physical health deterioration [Fatal]
  - Glossodynia [Fatal]
  - Hand deformity [Fatal]
  - Helicobacter infection [Fatal]
  - Hypercholesterolaemia [Fatal]
  - Hypoaesthesia [Fatal]
  - Infusion related reaction [Fatal]
  - Intentional product use issue [Fatal]
  - Joint swelling [Fatal]
  - Liver injury [Fatal]
  - Mobility decreased [Fatal]
  - Musculoskeletal stiffness [Fatal]
  - Pemphigus [Fatal]
  - Pericarditis [Fatal]
  - Product use in unapproved indication [Fatal]
  - Product use issue [Fatal]
  - Psoriatic arthropathy [Fatal]
  - Rheumatic fever [Fatal]
  - Rheumatoid arthritis [Fatal]
  - Rheumatoid factor positive [Fatal]
  - Synovitis [Fatal]
  - Systemic lupus erythematosus [Fatal]
  - Therapeutic product effect decreased [Fatal]
  - Treatment failure [Fatal]
  - Type 2 diabetes mellitus [Fatal]
  - Wound [Fatal]
  - C-reactive protein increased [Fatal]
  - Off label use [Fatal]
  - Osteoarthritis [Fatal]
  - Dizziness [Fatal]
  - Vomiting [Fatal]
  - Alopecia [Fatal]
  - Blister [Fatal]
  - Diarrhoea [Fatal]
  - Drug ineffective [Fatal]
  - Duodenal ulcer perforation [Fatal]
  - Fatigue [Fatal]
  - Headache [Fatal]
  - Hepatic enzyme increased [Fatal]
  - Hypersensitivity [Fatal]
  - Hypertension [Fatal]
  - Injury [Fatal]
  - Malaise [Fatal]
  - Pain [Fatal]
  - Rash [Fatal]
  - Swelling [Fatal]
